FAERS Safety Report 4847183-7 (Version None)
Quarter: 2005Q4

REPORT INFORMATION
  Report Type: 
  Country: None (occurrence: None)
  Receive Date: 20051207
  Receipt Date: 20050818
  Transmission Date: 20060501
  Serious: Yes (Hospitalization, Other)
  Sender: FDA-Public Use
  Company Number: US-MERCK-0508USA03443

PATIENT
  Age: 59 Year
  Sex: Female
  Weight: 88 kg

DRUGS (9)
  1. VIOXX [Suspect]
     Indication: ARTHRALGIA
     Route: 048
     Dates: start: 20030101, end: 20030801
  2. ZITHROMAX [Concomitant]
     Route: 065
  3. ALLOPURINOL [Concomitant]
     Indication: GOUT
     Route: 065
  4. COZAAR [Concomitant]
     Indication: HYPERTENSION
     Route: 065
     Dates: start: 20030101
  5. LOPRESSOR [Concomitant]
     Indication: HYPERTENSION
     Route: 065
     Dates: start: 20030101
  6. TOPROL-XL [Concomitant]
     Indication: HYPERTENSION
     Route: 065
     Dates: start: 20030101
  7. LIPITOR [Concomitant]
     Route: 065
     Dates: start: 20030101
  8. ZOCOR [Concomitant]
     Route: 065
     Dates: start: 20030101
  9. PREMARIN [Concomitant]
     Indication: HORMONE REPLACEMENT THERAPY
     Route: 065
     Dates: start: 19870101

REACTIONS (7)
  - ARTHRITIS [None]
  - CORONARY ARTERY DISEASE [None]
  - HYPERTENSION [None]
  - ISCHAEMIC CARDIOMYOPATHY [None]
  - MITRAL VALVE INCOMPETENCE [None]
  - MYOCARDIAL INFARCTION [None]
  - RENAL FAILURE [None]
